FAERS Safety Report 7968998-2 (Version None)
Quarter: 2011Q4

REPORT INFORMATION
  Report Type: 
  Country: None (occurrence: None)
  Receive Date: 20111209
  Receipt Date: 20111202
  Transmission Date: 20120403
  Serious: Yes (Hospitalization, Other)
  Sender: FDA-Public Use
  Company Number: FR-BAYER-2011-095853

PATIENT
  Age: 65 Year
  Sex: Male

DRUGS (10)
  1. MOXIFLOXACIN HCL [Suspect]
     Indication: CHRONIC OBSTRUCTIVE PULMONARY DISEASE
  2. PRAVASTATIN [Concomitant]
     Dosage: 40 MG, QD
  3. MOXIFLOXACIN HCL [Suspect]
     Indication: BRONCHITIS
     Dosage: 1 DF, QD
     Route: 048
     Dates: start: 20110930, end: 20111003
  4. TAMSULOSIN HCL [Concomitant]
     Dosage: 0.4 MG, QD
  5. RAMIPRIL [Concomitant]
     Dosage: 2.5 MG, QD
  6. ISOPTIN [Concomitant]
     Dosage: 240 MG, BID
  7. INOVAIR (BECLOMETASONE) [Concomitant]
  8. NULYTELY [Suspect]
     Dosage: UNK UNK, UNK
  9. OMEPRAZOLE [Concomitant]
  10. ASPIRIN [Concomitant]
     Dosage: 75 MG, UNK

REACTIONS (3)
  - VISION BLURRED [None]
  - DIPLOPIA [None]
  - HEADACHE [None]
